FAERS Safety Report 6751599-1 (Version None)
Quarter: 2010Q2

REPORT INFORMATION
  Report Type: 
  Country: None (occurrence: None)
  Receive Date: 20100526
  Receipt Date: 20100514
  Transmission Date: 20101027
  Serious: Yes (Other)
  Sender: FDA-Public Use
  Company Number: 2010AP000929

PATIENT
  Age: 82 Year
  Sex: Female

DRUGS (2)
  1. CIPROFLOXACIN HYDROCHLORIDE [Suspect]
     Indication: LOCALISED INFECTION
     Dosage: 500 MG;BID
  2. CLINDAMYCIN HCL [Concomitant]

REACTIONS (11)
  - BURNING SENSATION [None]
  - CUTANEOUS VASCULITIS [None]
  - ENTEROBACTER INFECTION [None]
  - ERYTHEMA [None]
  - FEMORAL ARTERIAL STENOSIS [None]
  - HAEMORRHAGE [None]
  - LOCALISED INFECTION [None]
  - PERIPHERAL ARTERIAL OCCLUSIVE DISEASE [None]
  - PROTEUS INFECTION [None]
  - PURPURA [None]
  - VASCULITIS [None]
